FAERS Safety Report 23401708 (Version 1)
Quarter: 2024Q1

REPORT INFORMATION
  Report Type: Spontaneous
  Country: US (occurrence: US)
  Receive Date: 20240115
  Receipt Date: 20240115
  Transmission Date: 20240410
  Serious: Yes (Death, Hospitalization, Other)
  Sender: FDA-Public Use
  Company Number: US-ADVANZ PHARMA-202312012306

PATIENT

DRUGS (3)
  1. CLONIDINE [Suspect]
     Active Substance: CLONIDINE
     Dosage: UNK (INGESTION)
     Route: 048
  2. METOPROLOL [Suspect]
     Active Substance: METOPROLOL
     Dosage: UNK (INGESTION)
     Route: 048
  3. AMLODIPINE [Suspect]
     Active Substance: AMLODIPINE BESYLATE
     Dosage: UNK (INGESTION)
     Route: 048

REACTIONS (2)
  - Cardio-respiratory arrest [Fatal]
  - Medication error [Fatal]
